FAERS Safety Report 8962455 (Version 1)
Quarter: 2012Q4

REPORT INFORMATION
  Report Type: 
  Country: DE (occurrence: DE)
  Receive Date: 20121213
  Receipt Date: 20121213
  Transmission Date: 20130627
  Serious: Yes (Life-Threatening, Hospitalization)
  Sender: FDA-Public Use
  Company Number: DE-ELI_LILLY_AND_COMPANY-DE201212003324

PATIENT
  Sex: Female

DRUGS (2)
  1. BYETTA [Suspect]
     Indication: TYPE 2 DIABETES MELLITUS
     Dosage: UNK, bid
     Route: 058
     Dates: start: 20120405
  2. METFORMIN [Concomitant]

REACTIONS (1)
  - Pancreatic carcinoma [Unknown]
